FAERS Safety Report 5779400-3 (Version None)
Quarter: 2008Q2

REPORT INFORMATION
  Report Type: 
  Country: None (occurrence: None)
  Receive Date: 20080619
  Receipt Date: 20071029
  Transmission Date: 20081010
  Serious: No
  Sender: FDA-Public Use
  Company Number: US-ASTRAZENECA-2007UW25191

PATIENT
  Age: 63 Year
  Sex: Female
  Weight: 80.7 kg

DRUGS (4)
  1. ATACAND [Suspect]
     Indication: HYPERTENSION
     Route: 048
     Dates: start: 20071001
  2. LIPITOR [Concomitant]
  3. ASPIRIN [Concomitant]
     Indication: CARPAL TUNNEL SYNDROME
  4. MOTRIN [Concomitant]
     Indication: CARPAL TUNNEL SYNDROME

REACTIONS (2)
  - DYSGEUSIA [None]
  - RENAL PAIN [None]
